FAERS Safety Report 16277320 (Version 1)
Quarter: 2019Q2

REPORT INFORMATION
  Report Type: Spontaneous
  Country: US (occurrence: US)
  Receive Date: 20190506
  Receipt Date: 20190506
  Transmission Date: 20190711
  Serious: No
  Sender: FDA-Public Use
  Company Number: US-MERZ NORTH AMERICA, INC.-19MRZ-00202

PATIENT
  Age: 62 Year
  Sex: Female

DRUGS (1)
  1. XEOMIN [Suspect]
     Active Substance: INCOBOTULINUMTOXINA
     Indication: TORTICOLLIS
     Dosage: RECENT INJECTION (UNSPECIFIED DATE) BUT NOW ON HOLD
     Dates: start: 20171201

REACTIONS (2)
  - Dizziness [Unknown]
  - Ataxia [Unknown]

NARRATIVE: CASE EVENT DATE: 201904
